FAERS Safety Report 18160508 (Version 3)
Quarter: 2020Q4

REPORT INFORMATION
  Report Type: Report from Study
  Country: PK (occurrence: PK)
  Receive Date: 20200817
  Receipt Date: 20201101
  Transmission Date: 20210113
  Serious: Yes (Death)
  Sender: FDA-Public Use
  Company Number: NVSC2020PK226845

PATIENT
  Age: 40 Year
  Sex: Male

DRUGS (5)
  1. SANDIMMUN NEORAL [Suspect]
     Active Substance: CYCLOSPORINE
     Indication: RENAL TRANSPLANT
     Dosage: 1.2 ML, BID (100MG/ML)
     Route: 048
     Dates: start: 20171220
  2. CELLCEPT [Concomitant]
     Active Substance: MYCOPHENOLATE MOFETIL\MYCOPHENOLATE MOFETIL HYDROCHLORIDE
     Indication: PRODUCT USED FOR UNKNOWN INDICATION
     Dosage: 500 MG, TID
     Route: 048
     Dates: start: 20171220
  3. SANDIMMUN NEORAL [Suspect]
     Active Substance: CYCLOSPORINE
  4. EZIDAY [Concomitant]
     Indication: HYPERTENSION
     Dosage: 50 MG, BID
     Route: 048
     Dates: start: 20190819
  5. DELTACORTRIL [Concomitant]
     Active Substance: PREDNISOLONE
     Indication: PRODUCT USED FOR UNKNOWN INDICATION
     Dosage: 5 MG, BID (2 BD)
     Route: 048
     Dates: start: 20171220

REACTIONS (2)
  - Pleural effusion [Fatal]
  - Pneumonia [Fatal]

NARRATIVE: CASE EVENT DATE: 20200810
